FAERS Safety Report 4890706-2 (Version None)
Quarter: 2006Q1

REPORT INFORMATION
  Report Type: 
  Country: None (occurrence: None)
  Receive Date: 20060125
  Receipt Date: 20030423
  Transmission Date: 20060701
  Serious: Yes (Other)
  Sender: FDA-Public Use
  Company Number: US-BRISTOL-MYERS SQUIBB COMPANY-12254116

PATIENT
  Age: 34 Year
  Sex: Female

DRUGS (5)
  1. STADOL [Suspect]
     Indication: HEADACHE
     Route: 045
     Dates: start: 19960920, end: 19980501
  2. CARISOPRODOL [Concomitant]
  3. HYDROCODONE + ACETAMINOPHEN [Concomitant]
  4. PROPOXYPHENE HCL [Concomitant]
  5. ACETAMINOPHEN + CODEINE [Concomitant]

REACTIONS (1)
  - DEPENDENCE [None]
